FAERS Safety Report 5611983-6 (Version None)
Quarter: 2008Q1

REPORT INFORMATION
  Report Type: 
  Country: None (occurrence: None)
  Receive Date: 20080130
  Receipt Date: 20080130
  Transmission Date: 20080703
  Serious: Yes (Other)
  Sender: FDA-Public Use
  Company Number: None

PATIENT
  Age: 50 Year
  Sex: Male
  Weight: 110.5 kg

DRUGS (2)
  1. HEPARIN [Suspect]
     Indication: HAEMODIALYSIS
     Dosage: 2000 UNITS X1 DIALYSIS
     Dates: start: 20071229
  2. HEPARIN [Suspect]
     Indication: HAEMODIALYSIS
     Dosage: 2000 UNITS X1 DIALYSIS
     Dates: start: 20080108

REACTIONS (4)
  - CHEST DISCOMFORT [None]
  - COLD SWEAT [None]
  - NAUSEA [None]
  - PHOTOPSIA [None]
